FAERS Safety Report 18833243 (Version 2)
Quarter: 2021Q1

REPORT INFORMATION
  Report Type: Report from Study
  Country: None (occurrence: HU)
  Receive Date: 20210201
  Receipt Date: 20210203
  Transmission Date: 20210419
  Serious: Yes (Hospitalization, Other)
  Sender: FDA-Public Use
  Company Number: HU-ABBVIE-21K-076-3754217-00

PATIENT
  Sex: Female

DRUGS (8)
  1. AMILOZID [Concomitant]
     Indication: HYPERTENSION
     Route: 048
  2. CLEXANE [Concomitant]
     Active Substance: ENOXAPARIN SODIUM
     Indication: PROPHYLAXIS
     Dosage: 4000 IU IN THE MORNING
     Route: 058
  3. ACILESOL [Concomitant]
     Active Substance: RABEPRAZOLE SODIUM
     Indication: PRODUCT USED FOR UNKNOWN INDICATION
     Route: 048
  4. DUODOPA [Suspect]
     Active Substance: CARBIDOPA\LEVODOPA
  5. FRONTIN [Concomitant]
     Active Substance: ALPRAZOLAM
     Indication: ANXIETY
     Dosage: 1 TABLET IN THE EVENING
     Route: 048
  6. BACLOFEN. [Concomitant]
     Active Substance: BACLOFEN
     Indication: MUSCLE RELAXANT THERAPY
     Dosage: 1 TABLET IN THE MORNING
     Route: 048
  7. DUODOPA [Suspect]
     Active Substance: CARBIDOPA\LEVODOPA
     Indication: PARKINSON^S DISEASE
     Dosage: MORNING DOSE: 4.0 ML; CONTINUOUS DOSE: 1.1 ML/HOUR; EXTRA DOSE: 0.8 ML
     Route: 050
     Dates: start: 20140724
  8. CITAGEN [Concomitant]
     Indication: DEPRESSION
     Dosage: 1 TABLET AT THE EVENING
     Route: 048

REACTIONS (10)
  - Diarrhoea [Recovered/Resolved]
  - Stoma site discharge [Not Recovered/Not Resolved]
  - Clostridium difficile infection [Unknown]
  - Atrial fibrillation [Unknown]
  - General physical health deterioration [Not Recovered/Not Resolved]
  - Choking [Recovered/Resolved]
  - COVID-19 pneumonia [Unknown]
  - Medication error [Recovered/Resolved]
  - Pulmonary embolism [Unknown]
  - Gait inability [Not Recovered/Not Resolved]

NARRATIVE: CASE EVENT DATE: 202012
